FAERS Safety Report 4800399-8 (Version None)
Quarter: 2005Q4

REPORT INFORMATION
  Report Type: 
  Country: None (occurrence: None)
  Receive Date: 20051006
  Receipt Date: 20050914
  Transmission Date: 20060501
  Serious: Yes (Other)
  Sender: FDA-Public Use
  Company Number: 2005BH001898

PATIENT

DRUGS (1)
  1. SODIUM CHLORIDE 0.9% [Suspect]
     Indication: HAEMODIALYSIS
     Dosage: IV
     Route: 042
     Dates: start: 20040701

REACTIONS (8)
  - CHEST DISCOMFORT [None]
  - DYSPNOEA [None]
  - ERYTHEMA [None]
  - EYE SWELLING [None]
  - NASAL CONGESTION [None]
  - OEDEMA MOUTH [None]
  - PRURITUS GENERALISED [None]
  - SNEEZING [None]
